FAERS Safety Report 17493931 (Version 1)
Quarter: 2020Q1

REPORT INFORMATION
  Report Type: Spontaneous
  Country: US (occurrence: US)
  Receive Date: 20200303
  Receipt Date: 20200303
  Transmission Date: 20200409
  Serious: No
  Sender: FDA-Public Use
  Company Number: US-AMNEAL PHARMACEUTICALS-2019-IPXL-01504

PATIENT
  Sex: Female

DRUGS (1)
  1. RYTARY [Suspect]
     Active Substance: CARBIDOPA\LEVODOPA
     Indication: PARKINSON^S DISEASE
     Dosage: 3CAPS AT 6AM TO 10AM, 2CAPS AT 2PM, 3CAPS AT 6PM, AND 2CAPS AT 10PM
     Route: 048

REACTIONS (2)
  - Hypotension [Not Recovered/Not Resolved]
  - Speech disorder [Not Recovered/Not Resolved]
